FAERS Safety Report 10616948 (Version 1)
Quarter: 2014Q4

REPORT INFORMATION
  Report Type: Spontaneous
  Country: US (occurrence: US)
  Receive Date: 20141201
  Receipt Date: 20141201
  Transmission Date: 20150529
  Serious: No
  Sender: FDA-Public Use
  Company Number: US-PFIZER INC-2014328710

PATIENT
  Age: 66 Year
  Sex: Female

DRUGS (1)
  1. CELEBREX [Suspect]
     Active Substance: CELECOXIB
     Dosage: UNK

REACTIONS (4)
  - Back pain [Unknown]
  - Cardiac disorder [Unknown]
  - Malaise [Unknown]
  - Dizziness [Unknown]
